FAERS Safety Report 6788568-1 (Version None)
Quarter: 2010Q2

REPORT INFORMATION
  Report Type: 
  Country: None (occurrence: None)
  Receive Date: 20100623
  Receipt Date: 20080407
  Transmission Date: 20101027
  Serious: No
  Sender: FDA-Public Use
  Company Number: US-PFIZER INC-2008022215

PATIENT
  Sex: Female
  Weight: 75 kg

DRUGS (7)
  1. GEODON [Suspect]
     Indication: NERVOUSNESS
     Route: 048
  2. GEODON [Suspect]
     Indication: ANXIETY DISORDER
  3. METOPROLOL TARTRATE [Concomitant]
     Indication: CARDIOVASCULAR EVENT PROPHYLAXIS
  4. METFORMIN HCL [Concomitant]
     Indication: DIABETES MELLITUS
  5. LISINOPRIL [Concomitant]
  6. ALL OTHER THERAPEUTIC PRODUCTS [Concomitant]
  7. GLYBURIDE [Concomitant]
     Indication: DIABETES MELLITUS

REACTIONS (3)
  - DRUG DOSE OMISSION [None]
  - NERVOUSNESS [None]
  - PRURITUS [None]
